FAERS Safety Report 11541819 (Version 1)
Quarter: 2015Q3

REPORT INFORMATION
  Report Type: Spontaneous
  Country: US (occurrence: US)
  Receive Date: 20150923
  Receipt Date: 20150923
  Transmission Date: 20151125
  Serious: No
  Sender: FDA-Public Use
  Company Number: US-TARO-2014TAR00413

PATIENT
  Age: 5 Year
  Sex: Male
  Weight: 18.14 kg

DRUGS (3)
  1. LORATADINE SYRUP (LORATADINE ORAL SOLUTION USP) 5MG/5ML [Suspect]
     Active Substance: LORATADINE
     Indication: SEASONAL ALLERGY
     Dosage: 5 ML, 1X/DAY
     Route: 048
     Dates: start: 2011
  2. LORATADINE SYRUP (LORATADINE ORAL SOLUTION USP) 5MG/5ML [Suspect]
     Active Substance: LORATADINE
     Dosage: 1.5 TSP, ONCE
     Route: 048
     Dates: start: 20140924, end: 20140924
  3. UNSPECIFIED ECZEMA LOTION [Concomitant]

REACTIONS (2)
  - Accidental overdose [Recovered/Resolved]
  - Somnolence [Recovered/Resolved]

NARRATIVE: CASE EVENT DATE: 20140924
